FAERS Safety Report 6107347-1 (Version None)
Quarter: 2009Q1

REPORT INFORMATION
  Report Type: 
  Country: None (occurrence: None)
  Receive Date: 20090304
  Receipt Date: 20090219
  Transmission Date: 20090719
  Serious: Yes (Other)
  Sender: FDA-Public Use
  Company Number: GB-DEXPHARM-20090215

PATIENT
  Age: 25 Year
  Sex: Female

DRUGS (2)
  1. OMEPRAZOLE [Suspect]
     Indication: GASTRIC PH DECREASED
     Dosage: 20 MG MILLGRAM(S)
     Route: 048
     Dates: start: 20090202, end: 20090203
  2. SALBUTAMOL [Concomitant]

REACTIONS (2)
  - ANXIETY [None]
  - LIP SWELLING [None]
